FAERS Safety Report 4949075-1 (Version None)
Quarter: 2006Q1

REPORT INFORMATION
  Report Type: 
  Country: None (occurrence: None)
  Receive Date: 20060315
  Receipt Date: 20060308
  Transmission Date: 20060701
  Serious: Yes (Hospitalization, Other)
  Sender: FDA-Public Use
  Company Number: HQWYE433207JAN05

PATIENT
  Age: 65 Year
  Sex: Male
  Weight: 85.5 kg

DRUGS (1)
  1. MYLOTARG [Suspect]
     Indication: ACUTE MYELOID LEUKAEMIA
     Dosage: 18.6 MG 1X PER 1 DAY, INTRAVENOUS
     Route: 042
     Dates: start: 20041210, end: 20041210

REACTIONS (11)
  - BLOOD ALBUMIN DECREASED [None]
  - BLOOD CHLORIDE INCREASED [None]
  - CHILLS [None]
  - DYSPNOEA [None]
  - HAEMOGLOBIN DECREASED [None]
  - INFUSION RELATED REACTION [None]
  - PLATELET COUNT DECREASED [None]
  - STRIDOR [None]
  - WEIGHT INCREASED [None]
  - WHEEZING [None]
  - WHITE BLOOD CELL COUNT DECREASED [None]
